FAERS Safety Report 5445457-2 (Version None)
Quarter: 2007Q3

REPORT INFORMATION
  Report Type: 
  Country: None (occurrence: None)
  Receive Date: 20070906
  Receipt Date: 20070905
  Transmission Date: 20080115
  Serious: Yes (Other)
  Sender: FDA-Public Use
  Company Number: US-ROXANE LABORATORIES, INC-2007-DE-05273GD

PATIENT
  Sex: Female

DRUGS (2)
  1. SERTRALINE [Suspect]
     Indication: ANXIETY
  2. SERTRALINE [Suspect]
     Indication: DEPRESSION

REACTIONS (4)
  - CONSTIPATION [None]
  - DYSPAREUNIA [None]
  - DYSURIA [None]
  - URINARY HESITATION [None]
